FAERS Safety Report 19749561 (Version 2)
Quarter: 2021Q3

REPORT INFORMATION
  Report Type: Report from Study
  Country: US (occurrence: US)
  Receive Date: 20210826
  Receipt Date: 20210903
  Transmission Date: 20211014
  Serious: No
  Sender: FDA-Public Use
  Company Number: NVSC2021US191786

PATIENT
  Sex: Female

DRUGS (1)
  1. COSENTYX [Suspect]
     Active Substance: SECUKINUMAB
     Indication: PSORIATIC ARTHROPATHY
     Dosage: 150 MG, EVERY TWO WEEKS
     Route: 003

REACTIONS (3)
  - Incorrect route of product administration [Unknown]
  - COVID-19 [Unknown]
  - Inappropriate schedule of product administration [Unknown]
